FAERS Safety Report 17719617 (Version 1)
Quarter: 2020Q2

REPORT INFORMATION
  Report Type: Spontaneous
  Country: ES (occurrence: ES)
  Receive Date: 20200428
  Receipt Date: 20200428
  Transmission Date: 20200714
  Serious: Yes (Other)
  Sender: FDA-Public Use
  Company Number: NVSC2020ES111793

PATIENT
  Age: 51 Year
  Sex: Male

DRUGS (3)
  1. TRIAMCINOLONE [Suspect]
     Active Substance: TRIAMCINOLONE
     Dosage: UNK
     Route: 031
  2. TRIAMCINOLONE [Suspect]
     Active Substance: TRIAMCINOLONE
     Indication: IMMUNE RECOVERY UVEITIS
     Dosage: 3 INJECTIONS WITH A 4-WEEK INTERVAL BETWEEN EACH
     Route: 065
  3. PENTOSTATIN. [Concomitant]
     Active Substance: PENTOSTATIN
     Indication: LEUKAEMIA
     Dosage: 8 CYCLES
     Route: 065

REACTIONS (3)
  - Therapy non-responder [Unknown]
  - Product use in unapproved indication [Unknown]
  - Cystoid macular oedema [Unknown]
